FAERS Safety Report 25550297 (Version 1)
Quarter: 2025Q3

REPORT INFORMATION
  Report Type: Spontaneous
  Country: CA (occurrence: CA)
  Receive Date: 20250714
  Receipt Date: 20250714
  Transmission Date: 20251020
  Serious: Yes (Hospitalization)
  Sender: MYLAN
  Company Number: CA-MYLANLABS-2025M1057898

PATIENT
  Age: 67 Year
  Sex: Male

DRUGS (72)
  1. DILANTIN [Suspect]
     Active Substance: PHENYTOIN
     Indication: Product used for unknown indication
  2. DILANTIN [Suspect]
     Active Substance: PHENYTOIN
     Route: 065
  3. DILANTIN [Suspect]
     Active Substance: PHENYTOIN
     Route: 065
  4. DILANTIN [Suspect]
     Active Substance: PHENYTOIN
  5. VALPROIC ACID [Suspect]
     Active Substance: VALPROIC ACID
     Indication: Product used for unknown indication
  6. VALPROIC ACID [Suspect]
     Active Substance: VALPROIC ACID
     Route: 065
  7. VALPROIC ACID [Suspect]
     Active Substance: VALPROIC ACID
     Route: 065
  8. VALPROIC ACID [Suspect]
     Active Substance: VALPROIC ACID
  9. XCOPRI [Suspect]
     Active Substance: CENOBAMATE
     Indication: Partial seizures
     Dosage: 150 MILLIGRAM, QD (1 EVERY 1 DAYS)
     Route: 048
  10. XCOPRI [Suspect]
     Active Substance: CENOBAMATE
     Dosage: 150 MILLIGRAM, QD (1 EVERY 1 DAYS)
  11. XCOPRI [Suspect]
     Active Substance: CENOBAMATE
     Dosage: 150 MILLIGRAM, QD (1 EVERY 1 DAYS)
  12. XCOPRI [Suspect]
     Active Substance: CENOBAMATE
     Dosage: 150 MILLIGRAM, QD (1 EVERY 1 DAYS)
     Route: 048
  13. XCOPRI [Suspect]
     Active Substance: CENOBAMATE
     Dosage: 125 MILLIGRAM, QD (1 EVERY 1 DAYS)
  14. XCOPRI [Suspect]
     Active Substance: CENOBAMATE
     Dosage: 125 MILLIGRAM, QD (1 EVERY 1 DAYS)
  15. XCOPRI [Suspect]
     Active Substance: CENOBAMATE
     Dosage: 125 MILLIGRAM, QD (1 EVERY 1 DAYS)
     Route: 048
  16. XCOPRI [Suspect]
     Active Substance: CENOBAMATE
     Dosage: 125 MILLIGRAM, QD (1 EVERY 1 DAYS)
     Route: 048
  17. XCOPRI [Suspect]
     Active Substance: CENOBAMATE
     Dosage: 25 MILLIGRAM, QD (1 EVERY 1 DAYS)
  18. XCOPRI [Suspect]
     Active Substance: CENOBAMATE
     Dosage: 25 MILLIGRAM, QD (1 EVERY 1 DAYS)
     Route: 048
  19. XCOPRI [Suspect]
     Active Substance: CENOBAMATE
     Dosage: 25 MILLIGRAM, QD (1 EVERY 1 DAYS)
  20. XCOPRI [Suspect]
     Active Substance: CENOBAMATE
     Dosage: 25 MILLIGRAM, QD (1 EVERY 1 DAYS)
     Route: 048
  21. XCOPRI [Suspect]
     Active Substance: CENOBAMATE
     Dosage: 200 MILLIGRAM, QD (1 EVERY 1 DAYS)
     Route: 048
  22. XCOPRI [Suspect]
     Active Substance: CENOBAMATE
     Dosage: 200 MILLIGRAM, QD (1 EVERY 1 DAYS)
  23. XCOPRI [Suspect]
     Active Substance: CENOBAMATE
     Dosage: 200 MILLIGRAM, QD (1 EVERY 1 DAYS)
  24. XCOPRI [Suspect]
     Active Substance: CENOBAMATE
     Dosage: 200 MILLIGRAM, QD (1 EVERY 1 DAYS)
     Route: 048
  25. XCOPRI [Suspect]
     Active Substance: CENOBAMATE
     Dosage: 175 MILLIGRAM, QD (1 EVERY 1 DAYS)
     Route: 048
  26. XCOPRI [Suspect]
     Active Substance: CENOBAMATE
     Dosage: 175 MILLIGRAM, QD (1 EVERY 1 DAYS)
  27. XCOPRI [Suspect]
     Active Substance: CENOBAMATE
     Dosage: 175 MILLIGRAM, QD (1 EVERY 1 DAYS)
  28. XCOPRI [Suspect]
     Active Substance: CENOBAMATE
     Dosage: 175 MILLIGRAM, QD (1 EVERY 1 DAYS)
     Route: 048
  29. XCOPRI [Suspect]
     Active Substance: CENOBAMATE
     Dosage: 100 MILLIGRAM, QD (1 EVERY 1 DAYS)
     Route: 048
  30. XCOPRI [Suspect]
     Active Substance: CENOBAMATE
     Dosage: 100 MILLIGRAM, QD (1 EVERY 1 DAYS)
  31. XCOPRI [Suspect]
     Active Substance: CENOBAMATE
     Dosage: 100 MILLIGRAM, QD (1 EVERY 1 DAYS)
  32. XCOPRI [Suspect]
     Active Substance: CENOBAMATE
     Dosage: 100 MILLIGRAM, QD (1 EVERY 1 DAYS)
     Route: 048
  33. XCOPRI [Suspect]
     Active Substance: CENOBAMATE
     Dosage: 50 MILLIGRAM, QD (1 EVERY 1 DAYS)
  34. XCOPRI [Suspect]
     Active Substance: CENOBAMATE
     Dosage: 50 MILLIGRAM, QD (1 EVERY 1 DAYS)
  35. XCOPRI [Suspect]
     Active Substance: CENOBAMATE
     Dosage: 50 MILLIGRAM, QD (1 EVERY 1 DAYS)
     Route: 048
  36. XCOPRI [Suspect]
     Active Substance: CENOBAMATE
     Dosage: 50 MILLIGRAM, QD (1 EVERY 1 DAYS)
     Route: 048
  37. XCOPRI [Suspect]
     Active Substance: CENOBAMATE
     Dosage: 12.5 MILLIGRAM, QD (1 EVERY 1 DAYS)
  38. XCOPRI [Suspect]
     Active Substance: CENOBAMATE
     Dosage: 12.5 MILLIGRAM, QD (1 EVERY 1 DAYS)
  39. XCOPRI [Suspect]
     Active Substance: CENOBAMATE
     Dosage: 12.5 MILLIGRAM, QD (1 EVERY 1 DAYS)
     Route: 048
  40. XCOPRI [Suspect]
     Active Substance: CENOBAMATE
     Dosage: 12.5 MILLIGRAM, QD (1 EVERY 1 DAYS)
     Route: 048
  41. ASPIRIN [Concomitant]
     Active Substance: ASPIRIN
  42. ASPIRIN [Concomitant]
     Active Substance: ASPIRIN
     Route: 065
  43. ASPIRIN [Concomitant]
     Active Substance: ASPIRIN
     Route: 065
  44. ASPIRIN [Concomitant]
     Active Substance: ASPIRIN
  45. BISOPROLOL [Concomitant]
     Active Substance: BISOPROLOL
  46. BISOPROLOL [Concomitant]
     Active Substance: BISOPROLOL
     Route: 065
  47. BISOPROLOL [Concomitant]
     Active Substance: BISOPROLOL
     Route: 065
  48. BISOPROLOL [Concomitant]
     Active Substance: BISOPROLOL
  49. EZETIMIBE [Concomitant]
     Active Substance: EZETIMIBE
  50. EZETIMIBE [Concomitant]
     Active Substance: EZETIMIBE
     Route: 065
  51. EZETIMIBE [Concomitant]
     Active Substance: EZETIMIBE
     Route: 065
  52. EZETIMIBE [Concomitant]
     Active Substance: EZETIMIBE
  53. MIDAZOLAM [Concomitant]
     Active Substance: MIDAZOLAM
  54. MIDAZOLAM [Concomitant]
     Active Substance: MIDAZOLAM
     Route: 065
  55. MIDAZOLAM [Concomitant]
     Active Substance: MIDAZOLAM
     Route: 065
  56. MIDAZOLAM [Concomitant]
     Active Substance: MIDAZOLAM
  57. RAMIPRIL [Concomitant]
     Active Substance: RAMIPRIL
  58. RAMIPRIL [Concomitant]
     Active Substance: RAMIPRIL
     Route: 065
  59. RAMIPRIL [Concomitant]
     Active Substance: RAMIPRIL
     Route: 065
  60. RAMIPRIL [Concomitant]
     Active Substance: RAMIPRIL
  61. ROSUVASTATIN [Concomitant]
     Active Substance: ROSUVASTATIN
  62. ROSUVASTATIN [Concomitant]
     Active Substance: ROSUVASTATIN
     Route: 065
  63. ROSUVASTATIN [Concomitant]
     Active Substance: ROSUVASTATIN
     Route: 065
  64. ROSUVASTATIN [Concomitant]
     Active Substance: ROSUVASTATIN
  65. TOPIRAMATE [Concomitant]
     Active Substance: TOPIRAMATE
  66. TOPIRAMATE [Concomitant]
     Active Substance: TOPIRAMATE
     Route: 065
  67. TOPIRAMATE [Concomitant]
     Active Substance: TOPIRAMATE
     Route: 065
  68. TOPIRAMATE [Concomitant]
     Active Substance: TOPIRAMATE
  69. VITAMIN D [Concomitant]
     Active Substance: VITAMIN D NOS
  70. VITAMIN D [Concomitant]
     Active Substance: VITAMIN D NOS
     Route: 065
  71. VITAMIN D [Concomitant]
     Active Substance: VITAMIN D NOS
     Route: 065
  72. VITAMIN D [Concomitant]
     Active Substance: VITAMIN D NOS

REACTIONS (1)
  - Off label use [Unknown]
